FAERS Safety Report 5069143-6 (Version None)
Quarter: 2006Q3

REPORT INFORMATION
  Report Type: 
  Country: None (occurrence: None)
  Receive Date: 20060731
  Receipt Date: 20060726
  Transmission Date: 20061208
  Serious: Yes (Other)
  Sender: FDA-Public Use
  Company Number: US-2006-005967

PATIENT
  Age: 42 Year
  Sex: Female

DRUGS (9)
  1. MIRENA [Suspect]
     Dosage: 20 UG/DAY CONT, INTRA-UTERINE
     Route: 015
     Dates: start: 20051201
  2. SYNTHROID [Concomitant]
  3. METFORMIN (METFORMIN) [Concomitant]
  4. NEXIUM [Concomitant]
  5. TRAZODONE HCL [Concomitant]
  6. TOPAMAX [Concomitant]
  7. LASIX [Concomitant]
  8. CARDIZEM [Concomitant]
  9. PROZAC [Concomitant]

REACTIONS (1)
  - BREAST CANCER FEMALE [None]
